FAERS Safety Report 9526647 (Version 1)
Quarter: 2013Q1

REPORT INFORMATION
  Report Type: Spontaneous
  Country: US (occurrence: None)
  Receive Date: 20130305
  Receipt Date: 20130305
  Transmission Date: 20140127
  Serious: Yes (Disabling)
  Sender: FDA-Public Use
  Company Number: 163-21880-12031320

PATIENT
  Age: 65 Year
  Sex: Male
  Weight: 77.11 kg

DRUGS (3)
  1. REVLIMID (LENALIDOMIDE) (CAPSULES) [Suspect]
     Indication: PLASMA CELL MYELOMA
     Route: 048
     Dates: start: 20120207, end: 20120302
  2. METFORMIN (METFORMIN) [Concomitant]
  3. LOSARTAN (LOSARTAN) [Concomitant]

REACTIONS (1)
  - Sudden visual loss [None]
